FAERS Safety Report 10173535 (Version 1)
Quarter: 2014Q2

REPORT INFORMATION
  Report Type: Spontaneous
  Country: GB (occurrence: GB)
  Receive Date: 20140515
  Receipt Date: 20140515
  Transmission Date: 20141212
  Serious: Yes (Other)
  Sender: FDA-Public Use
  Company Number: GB-TEVA-480057ISR

PATIENT
  Age: 86 Year
  Sex: Female
  Weight: 101 kg

DRUGS (1)
  1. BUMETANIDE [Suspect]

REACTIONS (2)
  - Lip swelling [Recovered/Resolved]
  - Mouth swelling [Recovered/Resolved]
